FAERS Safety Report 4401545-0 (Version None)
Quarter: 2004Q3

REPORT INFORMATION
  Report Type: 
  Country: None (occurrence: None)
  Receive Date: 20040714
  Receipt Date: 20040706
  Transmission Date: 20050211
  Serious: Yes (Other)
  Sender: FDA-Public Use
  Company Number: 2004-06-1127

PATIENT
  Age: 46 Year
  Sex: Male
  Weight: 93.8946 kg

DRUGS (6)
  1. PEG-INTRON [Suspect]
     Indication: HEPATITIS C
     Dosage: 150 MCG QWK SUBCUTANEOUS
     Route: 058
     Dates: start: 20020711, end: 20040101
  2. REBETOL [Suspect]
     Indication: HEPATITIS C
     Dosage: 600 MG BID ORAL
     Route: 048
     Dates: start: 20020711, end: 20040101
  3. K-LYTE [Concomitant]
  4. POTASSIUM PHOSPHATES [Concomitant]
  5. WELLBUTRIN [Concomitant]
  6. ARTHROTEC [Concomitant]

REACTIONS (2)
  - HAEMOCHROMATOSIS [None]
  - THERAPY NON-RESPONDER [None]
